FAERS Safety Report 18871644 (Version 1)
Quarter: 2021Q1

REPORT INFORMATION
  Report Type: Spontaneous
  Country: US (occurrence: US)
  Receive Date: 20210210
  Receipt Date: 20210210
  Transmission Date: 20210420
  Serious: Yes (Other)
  Sender: FDA-Public Use
  Company Number: None

PATIENT
  Age: 48 Year
  Sex: Female
  Weight: 54 kg

DRUGS (7)
  1. RANITIDINE. [Concomitant]
     Active Substance: RANITIDINE
  2. PROMETRIUM [Concomitant]
     Active Substance: PROGESTERONE
  3. MULTIVITAMIN GUMMI FOR KIDS [Concomitant]
  4. VITAMIN D [Concomitant]
     Active Substance: VITAMIN D NOS
  5. ZYRTEC [Concomitant]
     Active Substance: CETIRIZINE HYDROCHLORIDE
  6. CROMOLYN SODIUM ORAL SOLUTION CONCENTRATE [Suspect]
     Active Substance: CROMOLYN SODIUM
     Indication: MAST CELL ACTIVATION SYNDROME
     Dosage: ?          QUANTITY:2 VIAL;?
     Route: 048
     Dates: start: 20210101, end: 20210106
  7. LOW DOSE NALTREXONE [Concomitant]
     Active Substance: NALTREXONE

REACTIONS (8)
  - Manufacturing issue [None]
  - Skin burning sensation [None]
  - Nonspecific reaction [None]
  - Headache [None]
  - Diarrhoea [None]
  - Impaired work ability [None]
  - Product taste abnormal [None]
  - Swelling [None]

NARRATIVE: CASE EVENT DATE: 20210104
